FAERS Safety Report 19006306 (Version 3)
Quarter: 2021Q2

REPORT INFORMATION
  Report Type: Spontaneous
  Country: BE (occurrence: BE)
  Receive Date: 20210315
  Receipt Date: 20210503
  Transmission Date: 20210717
  Serious: Yes (Life-Threatening, Other)
  Sender: FDA-Public Use
  Company Number: BE-B.I. PHARMACEUTICALS,INC./RIDGEFIELD-2021-BI-088647

PATIENT
  Age: 66 Year
  Sex: Male
  Weight: 95 kg

DRUGS (7)
  1. PROPOFOL. [Suspect]
     Active Substance: PROPOFOL
     Indication: ANAESTHESIA
     Dosage: 300 MG
     Route: 065
  2. CATAPRESAN [Suspect]
     Active Substance: CLONIDINE
     Indication: ANAESTHESIA
     Dosage: 300 UG
  3. MIDAZOLAM. [Suspect]
     Active Substance: MIDAZOLAM
     Indication: ANAESTHESIA
     Dosage: 2 MG
     Route: 065
  4. PROPOFOL. [Suspect]
     Active Substance: PROPOFOL
     Dosage: CONTINUOUS INFUSION
     Route: 065
  5. ROCURONIUM BROMIDE. [Suspect]
     Active Substance: ROCURONIUM BROMIDE
     Indication: ANAESTHESIA
     Dosage: 50 MG
  6. SUCCINYLCHOLINE [SUXAMETHONIUM] [Suspect]
     Active Substance: SUCCINYLCHOLINE
     Indication: ANAESTHESIA
     Dosage: 100 MG
  7. SUFENTANIL [Suspect]
     Active Substance: SUFENTANIL
     Indication: ANAESTHESIA
     Dosage: UNK
     Route: 065

REACTIONS (2)
  - Hyperthermia malignant [Recovering/Resolving]
  - Rhabdomyolysis [Unknown]
